FAERS Safety Report 10177976 (Version 1)
Quarter: 2014Q2

REPORT INFORMATION
  Report Type: Spontaneous
  Country: CH (occurrence: CH)
  Receive Date: 20140516
  Receipt Date: 20140516
  Transmission Date: 20141212
  Serious: Yes (Hospitalization, Other)
  Sender: FDA-Public Use
  Company Number: CH-ALLERGAN-1409999US

PATIENT
  Age: 89 Year
  Sex: Male

DRUGS (11)
  1. TROSPIUM CHLORIDE UNK [Suspect]
     Indication: URINARY TRACT DISORDER
     Dosage: 20 MG, UNK
     Route: 048
  2. COSOPT [Suspect]
     Indication: GLAUCOMA
     Dosage: 2 GTT, UNK
     Route: 047
  3. COAPROVEL [Suspect]
     Indication: CARDIAC FAILURE
     Dosage: 1 DF, UNK
     Route: 048
  4. INDERAL [Suspect]
     Indication: ATRIAL FIBRILLATION
     Dosage: 160 MG, UNK
     Route: 048
  5. LASIX [Suspect]
     Indication: CARDIAC FAILURE
     Dosage: 80 MG, UNK
     Route: 048
  6. ALDACTONE [Suspect]
     Indication: CARDIAC FAILURE
     Dosage: 75 MG, Q WEEK
     Route: 048
  7. SINTROM [Suspect]
     Indication: ATRIAL FIBRILLATION
     Dosage: UNK
     Route: 048
  8. SIMCORA [Suspect]
     Indication: LIPIDS ABNORMAL
     Dosage: 20 MG, UNK
     Route: 048
  9. TELFAST [Suspect]
     Indication: PRODUCT USED FOR UNKNOWN INDICATION
     Dosage: 180 MG, UNK
     Route: 048
  10. DICETEL [Concomitant]
     Indication: PRODUCT USED FOR UNKNOWN INDICATION
  11. PADMED CIRCOSAN [Concomitant]
     Indication: PRODUCT USED FOR UNKNOWN INDICATION

REACTIONS (11)
  - Bradycardia [Unknown]
  - Cognitive disorder [Unknown]
  - Fall [Unknown]
  - Gait disturbance [Unknown]
  - Cardiac failure [Unknown]
  - Dyspnoea [Unknown]
  - Malaise [Unknown]
  - Hyponatraemia [Unknown]
  - Hypotension [Unknown]
  - Chest pain [Unknown]
  - Therapeutic response increased [Unknown]
